FAERS Safety Report 9640535 (Version 1)
Quarter: 2013Q4

REPORT INFORMATION
  Report Type: Report from Study
  Country: US (occurrence: US)
  Receive Date: 20131023
  Receipt Date: 20131023
  Transmission Date: 20140711
  Serious: No
  Sender: FDA-Public Use
  Company Number: US-ABBVIE-13P-163-1066626-00

PATIENT
  Age: 42 Year
  Sex: Female

DRUGS (8)
  1. LUPRON DEPOT [Suspect]
     Indication: PRODUCT USED FOR UNKNOWN INDICATION
  2. LIPITOR [Concomitant]
     Indication: PRODUCT USED FOR UNKNOWN INDICATION
  3. MULTI-VITAMINS VITAFIT [Concomitant]
     Indication: PRODUCT USED FOR UNKNOWN INDICATION
  4. NORETHINDRONE ACETATE [Concomitant]
     Indication: PRODUCT USED FOR UNKNOWN INDICATION
  5. ASA [Concomitant]
     Indication: PRODUCT USED FOR UNKNOWN INDICATION
  6. VITAMIN D [Concomitant]
     Indication: PRODUCT USED FOR UNKNOWN INDICATION
  7. KRILL OMEGA RED OIL [Concomitant]
     Indication: PRODUCT USED FOR UNKNOWN INDICATION
  8. CALCIUM [Concomitant]
     Indication: PRODUCT USED FOR UNKNOWN INDICATION

REACTIONS (12)
  - Migraine [Unknown]
  - Anxiety [Unknown]
  - Thinking abnormal [Unknown]
  - Feeling abnormal [Unknown]
  - Anger [Unknown]
  - Insomnia [Unknown]
  - Drug ineffective [Unknown]
  - Dizziness [Unknown]
  - Weight increased [Unknown]
  - Ear disorder [Unknown]
  - Feeling abnormal [Unknown]
  - Feeling abnormal [Unknown]
